FAERS Safety Report 6526471-2 (Version None)
Quarter: 2010Q1

REPORT INFORMATION
  Report Type: 
  Country: None (occurrence: None)
  Receive Date: 20100105
  Receipt Date: 20091228
  Transmission Date: 20100710
  Serious: Yes (Hospitalization)
  Sender: FDA-Public Use
  Company Number: JP-JNJFOC-20090406218

PATIENT
  Sex: Female

DRUGS (15)
  1. FENTANYL-100 [Suspect]
     Indication: PAIN
     Route: 062
  2. FENTANYL-100 [Suspect]
     Route: 062
  3. FENTANYL-100 [Suspect]
     Indication: DRUG USE FOR UNKNOWN INDICATION
     Route: 062
  4. FENTANYL-100 [Suspect]
     Route: 062
  5. DOMPERIDONE [Concomitant]
     Indication: PROPHYLAXIS OF NAUSEA AND VOMITING
     Route: 048
  6. LOXOPROFEN [Concomitant]
     Indication: ANALGESIC THERAPY
     Route: 048
  7. SELBEX [Concomitant]
     Indication: GASTRITIS PROPHYLAXIS
     Route: 048
  8. MECOBALAMIN [Concomitant]
     Indication: NEUROPATHY PERIPHERAL
     Route: 048
  9. PARIET [Concomitant]
     Indication: GASTRITIS PROPHYLAXIS
     Route: 048
  10. KALLIDINOGENASE [Concomitant]
     Indication: PERIPHERAL VASCULAR DISORDER
     Route: 048
  11. KALLIDINOGENASE [Concomitant]
     Indication: NEUROPATHY PERIPHERAL
     Route: 048
  12. ALOSENN [Concomitant]
     Indication: CONSTIPATION PROPHYLAXIS
     Route: 048
  13. MOHRUS [Concomitant]
     Indication: ANALGESIC THERAPY
     Dosage: AS NEEDED
     Route: 062
  14. HYALEIN [Concomitant]
     Indication: LACRIMATION DECREASED
     Route: 047
  15. SANCOBA [Concomitant]
     Indication: LACRIMATION DECREASED
     Route: 047

REACTIONS (1)
  - VERTIGO POSITIONAL [None]
